FAERS Safety Report 25911547 (Version 2)
Quarter: 2025Q4

REPORT INFORMATION
  Report Type: Report from Study
  Country: US (occurrence: US)
  Receive Date: 20251013
  Receipt Date: 20251202
  Transmission Date: 20260118
  Serious: Yes (Hospitalization, Other)
  Sender: ALEXION PHARMACEUTICALS
  Company Number: US-AstraZeneca-CH-00966404A

PATIENT
  Sex: Female

DRUGS (1)
  1. ULTOMIRIS [Suspect]
     Active Substance: RAVULIZUMAB-CWVZ
     Indication: Neuromyelitis optica spectrum disorder
     Dosage: UNK
     Route: 065

REACTIONS (9)
  - Myelopathy [Recovered/Resolved]
  - Hallucination [Unknown]
  - Neuromyelitis optica spectrum disorder [Unknown]
  - Fatigue [Not Recovered/Not Resolved]
  - Bursitis [Unknown]
  - Confusional state [Unknown]
  - Speech disorder [Unknown]
  - Dysstasia [Unknown]
  - Incoherent [Unknown]
